FAERS Safety Report 15305662 (Version 2)
Quarter: 2018Q4

REPORT INFORMATION
  Report Type: Spontaneous
  Country: DE (occurrence: DE)
  Receive Date: 20180822
  Receipt Date: 20181004
  Transmission Date: 20190204
  Serious: Yes (Hospitalization, Other)
  Sender: FDA-Public Use
  Company Number: DE-TEVA-2018-DE-945327

PATIENT
  Age: 54 Year
  Sex: Female

DRUGS (12)
  1. DIAZEPAM. [Concomitant]
     Active Substance: DIAZEPAM
     Dosage: 20 MILLIGRAM DAILY;
     Route: 065
     Dates: start: 20171104, end: 20171113
  2. SERTINDOL [Suspect]
     Active Substance: SERTINDOLE
     Dosage: 8 MILLIGRAM DAILY;
     Route: 065
     Dates: start: 20171129
  3. SERTINDOL [Suspect]
     Active Substance: SERTINDOLE
     Dates: start: 20171107, end: 20171110
  4. DIAZEPAM. [Concomitant]
     Active Substance: DIAZEPAM
     Route: 048
     Dates: start: 20171028, end: 20171031
  5. DIAZEPAM. [Concomitant]
     Active Substance: DIAZEPAM
     Route: 048
     Dates: start: 20171101, end: 20171103
  6. SERTINDOL [Suspect]
     Active Substance: SERTINDOLE
     Dates: start: 20171111, end: 20171114
  7. DIAZEPAM. [Concomitant]
     Active Substance: DIAZEPAM
     Dates: start: 20171116, end: 20171118
  8. BISOPROLOL [Suspect]
     Active Substance: BISOPROLOL
     Route: 048
     Dates: start: 20171112, end: 20171120
  9. SERTINDOL [Suspect]
     Active Substance: SERTINDOLE
     Dates: start: 20171115, end: 20171128
  10. SERTINDOL [Suspect]
     Active Substance: SERTINDOLE
     Route: 048
     Dates: start: 20171103, end: 20171106
  11. BISOPROLOL [Suspect]
     Active Substance: BISOPROLOL
     Dosage: 5 MILLIGRAM DAILY;
     Route: 048
     Dates: start: 2015, end: 20171111
  12. DIAZEPAM. [Concomitant]
     Active Substance: DIAZEPAM
     Dates: start: 20171114, end: 20171115

REACTIONS (2)
  - Electrocardiogram QT prolonged [Recovered/Resolved]
  - Arrhythmia [Recovered/Resolved]

NARRATIVE: CASE EVENT DATE: 20171117
